FAERS Safety Report 6141190-2 (Version None)
Quarter: 2009Q1

REPORT INFORMATION
  Report Type: 
  Country: None (occurrence: None)
  Receive Date: 20090330
  Receipt Date: 20090330
  Transmission Date: 20090719
  Serious: Yes (Other)
  Sender: FDA-Public Use
  Company Number: None

PATIENT
  Age: 46 Year
  Sex: Male
  Weight: 102.0593 kg

DRUGS (1)
  1. SUDAFED S.A. [Suspect]
     Indication: SINUS CONGESTION
     Dosage: 2 TABLETS -30 MG EACH 4 TIMES A DAY PO
     Route: 048
     Dates: start: 20090326, end: 20090329

REACTIONS (4)
  - DRUG EFFECT DECREASED [None]
  - MEDICATION ERROR [None]
  - PRODUCT QUALITY ISSUE [None]
  - PRURITUS [None]
